FAERS Safety Report 15557389 (Version 2)
Quarter: 2018Q4

REPORT INFORMATION
  Report Type: Spontaneous
  Country: US (occurrence: US)
  Receive Date: 20181026
  Receipt Date: 20181030
  Transmission Date: 20190205
  Serious: Yes (Other)
  Sender: FDA-Public Use
  Company Number: US-ALLERGAN-1838561US

PATIENT
  Age: 17 Year
  Sex: Female

DRUGS (2)
  1. BOTULINUM TOXIN TYPE A UNK [Suspect]
     Active Substance: BOTULINUM TOXIN TYPE A
     Indication: MIGRAINE
     Dosage: 150 IU, Q3MONTHS
     Route: 030
  2. GAMMAGARD S/D [Concomitant]
     Active Substance: HUMAN IMMUNOGLOBULIN G
     Indication: IMMUNODEFICIENCY COMMON VARIABLE
     Dosage: 15 G, Q MONTH
     Route: 042

REACTIONS (3)
  - Asthenia [Unknown]
  - Pulmonary function test decreased [Recovered/Resolved]
  - Respiratory fatigue [Recovered/Resolved]
